FAERS Safety Report 5110709-2 (Version None)
Quarter: 2006Q3

REPORT INFORMATION
  Report Type: 
  Country: None (occurrence: None)
  Receive Date: 20060919
  Receipt Date: 20060906
  Transmission Date: 20061208
  Serious: Yes (Death)
  Sender: FDA-Public Use
  Company Number: 2006BI005870

PATIENT
  Age: 47 Year
  Sex: Female

DRUGS (3)
  1. AVONEX [Suspect]
     Indication: MULTIPLE SCLEROSIS
     Dosage: IM
     Route: 030
  2. COPAXONE [Concomitant]
  3. METHOTREXATE [Concomitant]

REACTIONS (2)
  - BRAIN STEM SYNDROME [None]
  - MULTIPLE SCLEROSIS [None]
